FAERS Safety Report 6741513-7 (Version None)
Quarter: 2010Q2

REPORT INFORMATION
  Report Type: 
  Country: None (occurrence: None)
  Receive Date: 20100524
  Receipt Date: 20100507
  Transmission Date: 20101027
  Serious: Yes (Hospitalization)
  Sender: FDA-Public Use
  Company Number: BCN-AS-2010-RR-127

PATIENT
  Age: 81 Year
  Sex: Female

DRUGS (4)
  1. CARVEDILOL [Suspect]
     Indication: HYPERTENSION
     Dosage: 25 MG 1 IN 1 D, ORAL
     Route: 048
     Dates: start: 20030317
  2. KINZALKOMB (HYDROCHLORTHIAZIDE 12.5 MG/TELMISARTAN 80MG) 80/12.5 MG [Suspect]
     Indication: HYPERTENSION
     Dosage: ORAL
     Route: 048
     Dates: start: 20060101
  3. EBRANTIL (URAPIDIL) [Suspect]
     Indication: HYPERTENSION
     Dosage: 30 MG 2 IN 1 D, ORAL
     Route: 048
     Dates: start: 20061222
  4. MOXONIDINE (MOXONIDINE) [Concomitant]

REACTIONS (1)
  - FALSE POSITIVE LABORATORY RESULT [None]
